FAERS Safety Report 6164965-2 (Version None)
Quarter: 2009Q2

REPORT INFORMATION
  Report Type: 
  Country: None (occurrence: None)
  Receive Date: 20090423
  Receipt Date: 20090306
  Transmission Date: 20091009
  Serious: No
  Sender: FDA-Public Use
  Company Number: US-BAYER-200915025NA

PATIENT
  Age: 30 Year
  Sex: Female

DRUGS (1)
  1. OCELLA [Suspect]
     Indication: DRUG USE FOR UNKNOWN INDICATION
     Route: 048
     Dates: start: 20080801, end: 20090101

REACTIONS (11)
  - ABDOMINAL PAIN LOWER [None]
  - DIZZINESS [None]
  - FATIGUE [None]
  - GASTROINTESTINAL DISORDER [None]
  - HEADACHE [None]
  - HOT FLUSH [None]
  - INCREASED APPETITE [None]
  - MENORRHAGIA [None]
  - MOOD SWINGS [None]
  - NIGHT SWEATS [None]
  - WEIGHT INCREASED [None]
